FAERS Safety Report 12806128 (Version 6)
Quarter: 2022Q1

REPORT INFORMATION
  Report Type: Report from Study
  Country: CA (occurrence: CA)
  Receive Date: 20161004
  Receipt Date: 20220331
  Transmission Date: 20220423
  Serious: Yes (Other)
  Sender: FDA-Public Use
  Company Number: CA-GLAXOSMITHKLINE-CA2016GSK084842

PATIENT
  Age: 45 Year
  Sex: Female

DRUGS (23)
  1. DICLOFENAC [Suspect]
     Active Substance: DICLOFENAC
     Indication: Product used for unknown indication
     Dosage: 75 MG, BID
     Route: 048
  2. COSENTYX [Suspect]
     Active Substance: SECUKINUMAB
     Indication: Ankylosing spondylitis
     Dosage: 150 MG, WE
     Route: 058
     Dates: start: 20160601, end: 20160622
  3. COSENTYX [Suspect]
     Active Substance: SECUKINUMAB
     Dosage: 150 MG, QMO
     Route: 058
     Dates: start: 20160629
  4. COSENTYX [Suspect]
     Active Substance: SECUKINUMAB
     Dosage: 150 MG, QMO
     Route: 058
     Dates: start: 201702
  5. COSENTYX [Suspect]
     Active Substance: SECUKINUMAB
     Dosage: 300 MG, Z (MONTHLY)
     Route: 058
     Dates: start: 2019
  6. COSENTYX [Suspect]
     Active Substance: SECUKINUMAB
     Dosage: 450 MG, Z (MONTHLY) 300+150MG
     Route: 058
  7. COSENTYX [Suspect]
     Active Substance: SECUKINUMAB
     Dosage: 150 MG, Z (TWICE A WEEK)
     Route: 058
  8. COSENTYX [Suspect]
     Active Substance: SECUKINUMAB
     Dosage: 300 MG, Z (MONTHLY)
     Route: 058
  9. COSENTYX [Suspect]
     Active Substance: SECUKINUMAB
     Dosage: UNK
     Route: 058
     Dates: start: 2021
  10. PREDNISONE [Concomitant]
     Active Substance: PREDNISONE
     Indication: Product used for unknown indication
     Dosage: 10 MG, UNK
     Route: 065
     Dates: start: 20120101
  11. OMEPRAZOLE [Concomitant]
     Active Substance: OMEPRAZOLE
     Indication: Product used for unknown indication
     Dosage: UNK
     Route: 065
     Dates: start: 20150101
  12. DILAUDID [Concomitant]
     Active Substance: HYDROMORPHONE HYDROCHLORIDE
     Indication: Product used for unknown indication
     Dosage: 4 MG, UNK
     Route: 065
     Dates: start: 20091001
  13. HYDROMORPHONE [Concomitant]
     Active Substance: HYDROMORPHONE
     Indication: Product used for unknown indication
     Dosage: 12 MG, UNK
     Route: 065
     Dates: start: 20091001
  14. FERROUS FUMARATE [Concomitant]
     Active Substance: FERROUS FUMARATE
  15. VITAMIN C [Concomitant]
     Active Substance: ASCORBIC ACID
  16. OTEZLA [Concomitant]
     Active Substance: APREMILAST
     Dosage: 30 MG, UNK
     Dates: start: 20160101
  17. NAPROXEN [Concomitant]
     Active Substance: NAPROXEN
  18. IBUPROFEN [Concomitant]
     Active Substance: IBUPROFEN
  19. CLINORIL [Concomitant]
     Active Substance: SULINDAC
  20. INDOMETHACIN [Concomitant]
     Active Substance: INDOMETHACIN
  21. SULFASALAZINE [Concomitant]
     Active Substance: SULFASALAZINE
  22. ENBREL [Concomitant]
     Active Substance: ETANERCEPT
     Dosage: UNK
     Dates: end: 20120601
  23. DICLOFENAC [Concomitant]
     Active Substance: DICLOFENAC
     Indication: Product used for unknown indication
     Dosage: 75 MG, BID
     Route: 065
     Dates: start: 201301, end: 2019

REACTIONS (9)
  - Melaena [Unknown]
  - Haemoglobin decreased [Unknown]
  - Ankylosing spondylitis [Unknown]
  - Alopecia [Unknown]
  - Injection site swelling [Unknown]
  - Nasopharyngitis [Unknown]
  - Drug intolerance [Unknown]
  - Illness [Unknown]
  - Product prescribing error [Unknown]

NARRATIVE: CASE EVENT DATE: 20160601
